FAERS Safety Report 18535787 (Version 2)
Quarter: 2020Q4

REPORT INFORMATION
  Report Type: Spontaneous
  Country: JP (occurrence: JP)
  Receive Date: 20201123
  Receipt Date: 20201231
  Transmission Date: 20210114
  Serious: Yes (Hospitalization, Other)
  Sender: FDA-Public Use
  Company Number: US-ASTRAZENECA-2020SF49625

PATIENT
  Age: 82 Year
  Sex: Female

DRUGS (9)
  1. CELECOX [Suspect]
     Active Substance: CELECOXIB
     Indication: RASH
     Dosage: UNKNOWN
     Route: 065
     Dates: start: 20200716, end: 20200722
  2. CELECOX [Suspect]
     Active Substance: CELECOXIB
     Indication: ARTHRITIS
     Dosage: UNKNOWN
     Route: 065
     Dates: start: 20200716, end: 20200722
  3. BAKTAR [Suspect]
     Active Substance: SULFAMETHOXAZOLE\TRIMETHOPRIM
     Indication: ARTHRITIS
     Dosage: UNKNOWN UNKNOWN
     Route: 065
     Dates: start: 2020
  4. BAKTAR [Suspect]
     Active Substance: SULFAMETHOXAZOLE\TRIMETHOPRIM
     Indication: RASH
     Dosage: UNKNOWN UNKNOWN
     Route: 065
     Dates: start: 2020
  5. BAKTAR [Suspect]
     Active Substance: SULFAMETHOXAZOLE\TRIMETHOPRIM
     Indication: PYREXIA
     Dosage: UNKNOWN UNKNOWN
     Route: 065
     Dates: start: 2020
  6. CELECOX [Suspect]
     Active Substance: CELECOXIB
     Indication: PYREXIA
     Dosage: UNKNOWN
     Route: 065
     Dates: start: 20200716, end: 20200722
  7. NEXIUM [Suspect]
     Active Substance: ESOMEPRAZOLE MAGNESIUM
     Indication: PYREXIA
     Dosage: UNKNOWN UNKNOWN
     Route: 048
     Dates: start: 20200716, end: 20200722
  8. NEXIUM [Suspect]
     Active Substance: ESOMEPRAZOLE MAGNESIUM
     Indication: RASH
     Dosage: UNKNOWN UNKNOWN
     Route: 048
     Dates: start: 20200716, end: 20200722
  9. NEXIUM [Suspect]
     Active Substance: ESOMEPRAZOLE MAGNESIUM
     Indication: ARTHRITIS
     Dosage: UNKNOWN UNKNOWN
     Route: 048
     Dates: start: 20200716, end: 20200722

REACTIONS (8)
  - Pyrexia [Recovered/Resolved]
  - Still^s disease [Recovered/Resolved]
  - Drug eruption [Recovered/Resolved]
  - Arthritis [Recovered/Resolved]
  - Eye pruritus [Recovered/Resolved]
  - Lip swelling [Recovered/Resolved]
  - Pruritus [Unknown]
  - Deep vein thrombosis [Recovered/Resolved]

NARRATIVE: CASE EVENT DATE: 2020
